FAERS Safety Report 7363258-5 (Version None)
Quarter: 2011Q1

REPORT INFORMATION
  Report Type: 
  Country: None (occurrence: None)
  Receive Date: 20110321
  Receipt Date: 20110308
  Transmission Date: 20110831
  Serious: Yes (Hospitalization)
  Sender: FDA-Public Use
  Company Number: US-JNJFOC-20100201800

PATIENT
  Sex: Male
  Weight: 27.4 kg

DRUGS (9)
  1. REMICADE [Suspect]
     Route: 042
  2. METHOTREXATE [Concomitant]
  3. REMICADE [Suspect]
     Indication: CROHN'S DISEASE
     Dosage: 3 INFUSIONS RECEIVED
     Route: 042
  4. CIPRO [Concomitant]
  5. SARGRAMOSTIM [Concomitant]
  6. REMICADE [Suspect]
     Dosage: 5 INFUSIONS RECEIVED
     Route: 042
  7. MESALAMINE [Concomitant]
  8. METRONIDAZOLE [Concomitant]
  9. METRONIDAZOLE [Concomitant]

REACTIONS (7)
  - VOMITING [None]
  - RECTAL HAEMORRHAGE [None]
  - CROHN'S DISEASE [None]
  - METABOLIC ALKALOSIS [None]
  - DIARRHOEA [None]
  - ANAEMIA [None]
  - MALNUTRITION [None]
